FAERS Safety Report 24126667 (Version 1)
Quarter: 2024Q3

REPORT INFORMATION
  Report Type: Spontaneous
  Country: GR (occurrence: GR)
  Receive Date: 20240723
  Receipt Date: 20240723
  Transmission Date: 20241017
  Serious: Yes (Other)
  Sender: MYLAN
  Company Number: GR-MYLANLABS-2024M1063611

PATIENT
  Age: 66 Year
  Sex: Female

DRUGS (4)
  1. LYRICA [Suspect]
     Active Substance: PREGABALIN
     Indication: Neuralgia
     Dosage: 75 MILLIGRAM
     Route: 065
     Dates: end: 20240701
  2. LYRICA [Suspect]
     Active Substance: PREGABALIN
     Indication: Incontinence
  3. Zyteba [Concomitant]
     Indication: Hypertension
     Dosage: UNK
     Route: 065
  4. Theracor [Concomitant]
     Dosage: UNK
     Route: 065

REACTIONS (10)
  - Hypoaesthesia [Recovered/Resolved]
  - Swelling of eyelid [Recovered/Resolved]
  - Eye pruritus [Recovered/Resolved]
  - Skin tightness [Recovered/Resolved]
  - Eyelid ptosis [Recovered/Resolved]
  - Swelling face [Recovered/Resolved]
  - Skin burning sensation [Recovered/Resolved]
  - Pruritus [Recovered/Resolved]
  - Dry eye [Recovered/Resolved]
  - Dry skin [Recovered/Resolved]

NARRATIVE: CASE EVENT DATE: 20240702
